FAERS Safety Report 4482954-0 (Version None)
Quarter: 2004Q4

REPORT INFORMATION
  Report Type: 
  Country: None (occurrence: None)
  Receive Date: 20040921
  Receipt Date: 20040415
  Transmission Date: 20050328
  Serious: Yes (Death, Hospitalization)
  Sender: FDA-Public Use
  Company Number: 163-20785-04050181

PATIENT
  Age: 42 Year
  Sex: Female
  Weight: 58.1511 kg

DRUGS (11)
  1. THALOMID [Suspect]
     Indication: MALIGNANT MELANOMA
     Dosage: 200 MG, DAILY, ORAL
     Route: 048
     Dates: start: 20040223, end: 20040416
  2. TEMODAR [Suspect]
     Indication: MALIGNANT MELANOMA
     Dosage: 125 MG, DAILY, ORAL
     Route: 048
     Dates: start: 20040223, end: 20040405
  3. COMPAZINE [Concomitant]
  4. NEURONTIN [Concomitant]
  5. ZOFRAN (ONDASETRON HYDROCHLORIDE) [Concomitant]
  6. VITAMIN B6 (PYROXIDINE HYDROCHLORIDE) (TABLETS) [Concomitant]
  7. ATIVAN [Concomitant]
  8. DECADRON [Concomitant]
  9. COLACE (DOCUSATE SODIUM) [Concomitant]
  10. SENNA (SENNA) (TABLETS) [Concomitant]
  11. ZANTAC [Concomitant]

REACTIONS (4)
  - ANAEMIA [None]
  - DEATH [None]
  - DISEASE PROGRESSION [None]
  - DIZZINESS [None]
